FAERS Safety Report 10770938 (Version 1)
Quarter: 2015Q1

REPORT INFORMATION
  Report Type: Spontaneous
  Country: US (occurrence: US)
  Receive Date: 20150206
  Receipt Date: 20150206
  Transmission Date: 20150721
  Serious: No
  Sender: FDA-Public Use
  Company Number: US-BAYER-2015-014744

PATIENT
  Age: 54 Year
  Sex: Female

DRUGS (1)
  1. CLIMARA PRO [Suspect]
     Active Substance: ESTRADIOL\LEVONORGESTREL
     Indication: HORMONE REPLACEMENT THERAPY
     Dosage: 1 DF, Q1WK
     Route: 062
     Dates: start: 20150106

REACTIONS (3)
  - Application site rash [None]
  - Application site vesicles [None]
  - Drug administered at inappropriate site [None]

NARRATIVE: CASE EVENT DATE: 20150106
